FAERS Safety Report 5409655-6 (Version None)
Quarter: 2007Q3

REPORT INFORMATION
  Report Type: 
  Country: None (occurrence: None)
  Receive Date: 20070808
  Receipt Date: 20070808
  Transmission Date: 20080115
  Serious: Yes (Hospitalization)
  Sender: FDA-Public Use
  Company Number: None

PATIENT
  Age: 70 Year
  Sex: Male

DRUGS (1)
  1. NIFEDIPINE [Suspect]
     Dosage: 30MG EVERY DAY PO
     Route: 048
     Dates: start: 20070404, end: 20070515

REACTIONS (4)
  - CARDIAC OUTPUT DECREASED [None]
  - CONDITION AGGRAVATED [None]
  - DYSPNOEA [None]
  - PULMONARY HYPERTENSION [None]
